FAERS Safety Report 6327893-5 (Version None)
Quarter: 2009Q3

REPORT INFORMATION
  Report Type: 
  Country: None (occurrence: None)
  Receive Date: 20090825
  Receipt Date: 20080929
  Transmission Date: 20100115
  Serious: No
  Sender: FDA-Public Use
  Company Number: US-ABBOTT-06P-163-0331618-00

PATIENT
  Sex: Female
  Weight: 71.732 kg

DRUGS (3)
  1. SYNTHROID [Suspect]
     Indication: THYROIDECTOMY
     Route: 048
     Dates: start: 20051101, end: 20060101
  2. SYNTHROID [Suspect]
     Route: 048
     Dates: start: 20060101
  3. SYNTHROID [Suspect]

REACTIONS (6)
  - ALOPECIA [None]
  - INSOMNIA [None]
  - LIBIDO DECREASED [None]
  - MENSTRUATION IRREGULAR [None]
  - RASH GENERALISED [None]
  - WEIGHT INCREASED [None]
